FAERS Safety Report 17718987 (Version 1)
Quarter: 2020Q2

REPORT INFORMATION
  Report Type: Spontaneous
  Country: SA (occurrence: SA)
  Receive Date: 20200428
  Receipt Date: 20200428
  Transmission Date: 20200714
  Serious: Yes (Other)
  Sender: FDA-Public Use
  Company Number: SA-009507513-2004SAU007426

PATIENT
  Age: 25 Year
  Sex: Female

DRUGS (4)
  1. PEGINTERFERON ALFA-2B [Suspect]
     Active Substance: PEGINTERFERON ALFA-2B
     Indication: OCULAR SURFACE SQUAMOUS NEOPLASIA
     Dosage: 3 MILLON IU/0.5 ML, IN EACH EYE.INJECTIONS WERE GIVEN 9 TIMES, 2 WEEKS APART OVER 14 MONTHS, FOR A T
     Route: 057
     Dates: start: 201506, end: 201703
  2. MITOMYCIN. [Suspect]
     Active Substance: MITOMYCIN
     Indication: DYSPLASIA
  3. MITOMYCIN. [Suspect]
     Active Substance: MITOMYCIN
     Indication: CONJUNCTIVAL PRIMARY ACQUIRED MELANOSIS
  4. MITOMYCIN. [Suspect]
     Active Substance: MITOMYCIN
     Indication: OCULAR SURFACE SQUAMOUS NEOPLASIA
     Dosage: 0.2 MILLIGRAM PER MILLILITRE, 15 CYCLES
     Route: 047

REACTIONS (8)
  - Incorrect route of product administration [Unknown]
  - Malaise [Recovered/Resolved]
  - Off label use [Unknown]
  - Pyrexia [Unknown]
  - Diabetes mellitus [Unknown]
  - Leukopenia [Unknown]
  - Influenza like illness [Unknown]
  - Depression [Unknown]
